FAERS Safety Report 10687296 (Version 1)
Quarter: 2015Q1

REPORT INFORMATION
  Report Type: Spontaneous
  Country: US (occurrence: US)
  Receive Date: 20150102
  Receipt Date: 20150102
  Transmission Date: 20150720
  Serious: No
  Sender: FDA-Public Use
  Company Number: US-BAYER-2014-190269

PATIENT
  Age: 35 Year
  Sex: Female
  Weight: 170.52 kg

DRUGS (1)
  1. MIRENA [Suspect]
     Active Substance: LEVONORGESTREL
     Indication: CONTRACEPTION
     Dosage: 20 MCG/24HR, CONT
     Route: 015
     Dates: start: 20141223, end: 20141223

REACTIONS (2)
  - Device difficult to use [None]
  - Post procedural discomfort [None]

NARRATIVE: CASE EVENT DATE: 20141223
